FAERS Safety Report 20841503 (Version 2)
Quarter: 2022Q2

REPORT INFORMATION
  Report Type: Spontaneous
  Country: US (occurrence: US)
  Receive Date: 20220518
  Receipt Date: 20220621
  Transmission Date: 20220721
  Serious: Yes (Death, Other)
  Sender: FDA-Public Use
  Company Number: US-BRISTOL-MYERS SQUIBB COMPANY-2022-041317

PATIENT
  Age: 7 Year

DRUGS (3)
  1. THALOMID [Suspect]
     Active Substance: THALIDOMIDE
     Indication: Ependymoma malignant
     Route: 048
     Dates: start: 20211002
  2. ETOPOSIDE [Concomitant]
     Active Substance: ETOPOSIDE
     Indication: Ependymoma malignant
     Dates: start: 20211002
  3. CHLORPHENIRAMINE MALEATE [Concomitant]
     Active Substance: CHLORPHENIRAMINE MALEATE
     Indication: Product used for unknown indication
     Route: 048
     Dates: start: 20210911

REACTIONS (3)
  - Malignant neoplasm progression [Fatal]
  - Seizure [Unknown]
  - Intentional product use issue [Unknown]

NARRATIVE: CASE EVENT DATE: 20211121
